FAERS Safety Report 9158881 (Version 1)
Quarter: 2013Q1

REPORT INFORMATION
  Report Type: Spontaneous
  Country: IT (occurrence: None)
  Receive Date: 20130311
  Receipt Date: 20130311
  Transmission Date: 20140127
  Serious: Yes (Death, Life-Threatening)
  Sender: FDA-Public Use
  Company Number: 2013AP003506

PATIENT
  Age: 90 Year
  Sex: Male

DRUGS (1)
  1. ATORVASTATIN (ATORVASTATIN) [Suspect]
     Indication: MYOCARDIAL ISCHAEMIA
     Dosage: 415 DAY(S)
     Route: 048
     Dates: start: 20111220, end: 20130206

REACTIONS (4)
  - Asthenia [None]
  - Fatigue [None]
  - Hypertonia [None]
  - Rhabdomyolysis [None]
